FAERS Safety Report 6429888-X (Version None)
Quarter: 2009Q4

REPORT INFORMATION
  Report Type: 
  Country: None (occurrence: None)
  Receive Date: 20091106
  Receipt Date: 20091102
  Transmission Date: 20100525
  Serious: Yes (Death)
  Sender: FDA-Public Use
  Company Number: US-JNJFOC-20091101371

PATIENT
  Sex: Female
  Weight: 81.19 kg

DRUGS (4)
  1. FENTANYL-100 [Suspect]
     Indication: DRUG USE FOR UNKNOWN INDICATION
     Route: 062
  2. GABAPENTIN [Concomitant]
  3. OXYCODONE [Concomitant]
  4. SERTRALINE HCL [Concomitant]

REACTIONS (2)
  - DRUG ADMINISTERED AT INAPPROPRIATE SITE [None]
  - NARCOTIC INTOXICATION [None]
